FAERS Safety Report 13430796 (Version 1)
Quarter: 2017Q2

REPORT INFORMATION
  Report Type: Spontaneous
  Country: US (occurrence: US)
  Receive Date: 20170411
  Receipt Date: 20170411
  Transmission Date: 20170830
  Serious: Yes (Other)
  Sender: FDA-Public Use
  Company Number: None

PATIENT
  Age: 64 Year
  Sex: Male
  Weight: 148.6 kg

DRUGS (1)
  1. MOMETASONE [Suspect]
     Active Substance: MOMETASONE
     Indication: EMPHYSEMA
     Dosage: MCG BID INHALE
     Route: 055
     Dates: start: 20160512

REACTIONS (1)
  - Optic atrophy [None]

NARRATIVE: CASE EVENT DATE: 20160819
